FAERS Safety Report 4959784-6 (Version None)
Quarter: 2006Q1

REPORT INFORMATION
  Report Type: 
  Country: None (occurrence: None)
  Receive Date: 20060331
  Receipt Date: 20060112
  Transmission Date: 20060701
  Serious: Yes (Disabling)
  Sender: FDA-Public Use
  Company Number: FR-BOEHRINGER INGELHEIM PHARMACEUTICALS, INC.-2006-FF-00030FF

PATIENT
  Sex: Female
  Weight: 60 kg

DRUGS (2)
  1. SIFROL [Suspect]
     Indication: PARKINSON'S DISEASE
     Route: 048
     Dates: start: 20051020, end: 20060110
  2. MODOPAR [Concomitant]
     Indication: PARKINSON'S DISEASE
     Route: 048
     Dates: start: 20040101

REACTIONS (2)
  - DERMATITIS ALLERGIC [None]
  - OEDEMA PERIPHERAL [None]
